FAERS Safety Report 14646616 (Version 1)
Quarter: 2018Q1

REPORT INFORMATION
  Report Type: Spontaneous
  Country: DE (occurrence: DE)
  Receive Date: 20180316
  Receipt Date: 20180316
  Transmission Date: 20180509
  Serious: Yes (Other)
  Sender: FDA-Public Use
  Company Number: PHHY2018DE002600

PATIENT
  Age: 76 Year
  Sex: Female

DRUGS (3)
  1. ACICLOVIR [Suspect]
     Active Substance: ACYCLOVIR
     Dosage: UNK, INITIAL DOSE NOT STATED; ADMINISTERED FOR 21 DAYS
     Route: 042
  2. ACICLOVIR [Suspect]
     Active Substance: ACYCLOVIR
     Indication: HERPES SIMPLEX ENCEPHALITIS
     Dosage: 750 MG, TID
     Route: 042
  3. FOSCARNET [Suspect]
     Active Substance: FOSCARNET
     Indication: HERPES SIMPLEX ENCEPHALITIS
     Dosage: UNK
     Route: 042

REACTIONS (4)
  - Treatment failure [Unknown]
  - Disease progression [Unknown]
  - Drug resistance [Unknown]
  - Pathogen resistance [Unknown]
